FAERS Safety Report 9916545 (Version 1)
Quarter: 2014Q1

REPORT INFORMATION
  Report Type: Spontaneous
  Country: CN (occurrence: CN)
  Receive Date: 20140221
  Receipt Date: 20140221
  Transmission Date: 20141002
  Serious: Yes (Death, Other)
  Sender: FDA-Public Use
  Company Number: PHHY2014CN019871

PATIENT
  Age: 59 Year
  Sex: Female
  Weight: 63.5 kg

DRUGS (4)
  1. GLIVEC [Suspect]
     Indication: CHRONIC MYELOID LEUKAEMIA
     Dosage: 600 MG, QD
     Route: 048
     Dates: start: 20110116
  2. GLIVEC [Suspect]
     Dosage: 400 MG, QD
     Route: 048
     Dates: end: 201212
  3. NILOTINIB [Suspect]
     Dosage: UNK UKN, UNK
  4. NILOTINIB [Suspect]
     Dosage: 400 MG, Q12H
     Dates: start: 20130315

REACTIONS (14)
  - Chronic myeloid leukaemia transformation [Fatal]
  - General physical health deterioration [Unknown]
  - Respiratory arrest [Unknown]
  - Depressed level of consciousness [Unknown]
  - Lung infection [Unknown]
  - Pyrexia [Unknown]
  - Chronic myeloid leukaemia [Unknown]
  - Neoplasm recurrence [Unknown]
  - Herpes zoster [Unknown]
  - Jaundice [Recovering/Resolving]
  - Insomnia [Unknown]
  - Productive cough [Unknown]
  - Platelet count decreased [Unknown]
  - Decreased appetite [Unknown]
